FAERS Safety Report 12196070 (Version 1)
Quarter: 2016Q1

REPORT INFORMATION
  Report Type: Report from Study
  Country: US (occurrence: US)
  Receive Date: 20160321
  Receipt Date: 20160321
  Transmission Date: 20160526
  Serious: Yes (Other)
  Sender: FDA-Public Use
  Company Number: US-ABBVIE-16K-163-1583554-00

PATIENT
  Age: 49 Year
  Sex: Female
  Weight: 72.64 kg

DRUGS (1)
  1. HUMIRA [Suspect]
     Active Substance: ADALIMUMAB
     Indication: RHEUMATOID ARTHRITIS
     Route: 058

REACTIONS (5)
  - Arthralgia [Recovering/Resolving]
  - Wrong technique in product usage process [Unknown]
  - Joint lock [Recovered/Resolved]
  - Drug dose omission [Unknown]
  - Nodule [Unknown]

NARRATIVE: CASE EVENT DATE: 20160310
